FAERS Safety Report 6629631-5 (Version None)
Quarter: 2010Q1

REPORT INFORMATION
  Report Type: 
  Country: None (occurrence: None)
  Receive Date: 20100311
  Receipt Date: 20100303
  Transmission Date: 20100710
  Serious: Yes (Other)
  Sender: FDA-Public Use
  Company Number: US-PFIZER INC-2010028291

PATIENT
  Sex: Female
  Weight: 53.07 kg

DRUGS (5)
  1. CADUET [Suspect]
     Indication: BLOOD CHOLESTEROL INCREASED
     Dosage: 5 MG/20 MG, UNK
     Dates: start: 20100301, end: 20100303
  2. CADUET [Suspect]
     Indication: HYPERTENSION
  3. SYNTHROID [Concomitant]
     Dosage: 75 MG, IN THE MORNING
  4. CALCIUM [Concomitant]
     Dosage: UNK
  5. VITAMIN D [Concomitant]
     Dosage: UNK

REACTIONS (3)
  - DIZZINESS [None]
  - HEART RATE INCREASED [None]
  - HYPERTENSION [None]
